FAERS Safety Report 5622421-1 (Version None)
Quarter: 2008Q1

REPORT INFORMATION
  Report Type: 
  Country: None (occurrence: None)
  Receive Date: 20080211
  Receipt Date: 20080130
  Transmission Date: 20080703
  Serious: Yes (Other)
  Sender: FDA-Public Use
  Company Number: US-PFIZER INC-2007108098

PATIENT
  Sex: Female
  Weight: 52.6 kg

DRUGS (11)
  1. CHANTIX [Suspect]
     Indication: EX-SMOKER
     Dates: start: 20070921, end: 20071218
  2. CHANTIX [Suspect]
     Indication: TOBACCO ABUSE
  3. GEODON [Suspect]
     Indication: DISSOCIATIVE IDENTITY DISORDER
  4. ALL OTHER THERAPEUTIC PRODUCTS [Suspect]
  5. NEURONTIN [Concomitant]
  6. CALCIUM GLUCONATE [Concomitant]
  7. VITAMIN D [Concomitant]
  8. CELEXA [Concomitant]
     Indication: DEPRESSION
  9. TOPAMAX [Concomitant]
     Indication: EPILEPSY
  10. LAMICTAL [Concomitant]
     Indication: BIPOLAR DISORDER
  11. ASPIRIN [Concomitant]
     Indication: CARDIAC DISORDER

REACTIONS (3)
  - ARTHRALGIA [None]
  - DISSOCIATIVE IDENTITY DISORDER [None]
  - ORTHOSTATIC HYPOTENSION [None]
